FAERS Safety Report 5854262-4 (Version None)
Quarter: 2008Q3

REPORT INFORMATION
  Report Type: 
  Country: None (occurrence: None)
  Receive Date: 20080822
  Receipt Date: 20080808
  Transmission Date: 20090109
  Serious: Yes (Life-Threatening)
  Sender: FDA-Public Use
  Company Number: JP-GENENTECH-258841

PATIENT
  Sex: Female
  Weight: 59 kg

DRUGS (4)
  1. BEVACIZUMAB [Suspect]
     Indication: RECTAL CANCER
     Dosage: 5 MG/KG, Q2W
     Route: 041
     Dates: start: 20071023, end: 20080318
  2. FLUOROURACIL [Concomitant]
     Indication: DRUG USE FOR UNKNOWN INDICATION
     Dates: start: 20071023, end: 20080319
  3. IRINOTECAN HCL [Concomitant]
     Indication: DRUG USE FOR UNKNOWN INDICATION
     Dates: start: 20071023, end: 20080318
  4. ISOVORIN [Concomitant]
     Indication: DRUG USE FOR UNKNOWN INDICATION
     Dates: start: 20071023, end: 20080323

REACTIONS (1)
  - MECHANICAL ILEUS [None]
